FAERS Safety Report 9934212 (Version 1)
Quarter: 2014Q1

REPORT INFORMATION
  Report Type: Spontaneous
  Country: US (occurrence: US)
  Receive Date: 20140228
  Receipt Date: 20140228
  Transmission Date: 20141002
  Serious: Yes (Other)
  Sender: FDA-Public Use
  Company Number: US-BAYER-2014-028439

PATIENT
  Age: 18 Year
  Sex: Female

DRUGS (3)
  1. MIRENA [Suspect]
     Indication: CONTRACEPTION
     Dosage: 20 MCG/24HR, CONT
     Route: 015
     Dates: start: 20131231
  2. MIRENA [Suspect]
     Indication: POLYCYSTIC OVARIES
  3. MIRENA [Suspect]
     Indication: GENITAL HAEMORRHAGE

REACTIONS (4)
  - Pain [None]
  - Genital haemorrhage [None]
  - Device issue [None]
  - Procedural pain [None]
